FAERS Safety Report 9565200 (Version 2)
Quarter: 2013Q4

REPORT INFORMATION
  Report Type: Spontaneous
  Country: US (occurrence: US)
  Receive Date: 20130930
  Receipt Date: 20131126
  Transmission Date: 20140711
  Serious: Yes (Other)
  Sender: FDA-Public Use
  Company Number: US-PFIZER INC-2013279813

PATIENT
  Age: 15 Year
  Sex: Female
  Weight: 49.89 kg

DRUGS (2)
  1. SERTRALINE HCL [Suspect]
     Indication: DEPRESSION
     Dosage: UNK, DAILY
     Dates: start: 2011
  2. BUPROPION HYDROCHLORIDE [Concomitant]
     Dosage: UNK

REACTIONS (3)
  - Autoimmune thyroiditis [Unknown]
  - Infection [Unknown]
  - Off label use [Unknown]
